FAERS Safety Report 8585094-4 (Version None)
Quarter: 2012Q3

REPORT INFORMATION
  Report Type: 
  Country: None (occurrence: None)
  Receive Date: 20120810
  Receipt Date: 20120731
  Transmission Date: 20120928
  Serious: Yes (Other)
  Sender: FDA-Public Use
  Company Number: FR-NOVOPROD-357391

PATIENT
  Age: 41 Year
  Sex: Female

DRUGS (4)
  1. ATORVASTATIN [Concomitant]
  2. LEVOTHYROXINE SODIUM [Concomitant]
  3. VICTOZA [Suspect]
     Indication: DIABETES MELLITUS
     Dosage: UNK
     Route: 064
     Dates: end: 20111201
  4. GLUCOPHAGE [Concomitant]

REACTIONS (2)
  - MATERNAL EXPOSURE DURING PREGNANCY [None]
  - ABORTION SPONTANEOUS [None]
